FAERS Safety Report 12202302 (Version 1)
Quarter: 2016Q1

REPORT INFORMATION
  Report Type: Spontaneous
  Country: FR (occurrence: FR)
  Receive Date: 20160322
  Receipt Date: 20160322
  Transmission Date: 20160526
  Serious: Yes (Death, Other)
  Sender: FDA-Public Use
  Company Number: FR-TEVA-643236ISR

PATIENT
  Age: 68 Year
  Sex: Male

DRUGS (16)
  1. VANCOMYCINE [Concomitant]
     Active Substance: VANCOMYCIN
     Dates: start: 20160220
  2. ZAVEDOS [Suspect]
     Active Substance: IDARUBICIN
     Dosage: GRASPALL 2007 PROTOCOL (D1,D2,D8,D9)
     Route: 041
     Dates: start: 20160215
  3. VANCOMYCINE [Concomitant]
     Active Substance: VANCOMYCIN
     Dates: start: 20160205, end: 20160205
  4. TAZOCILLINE [Concomitant]
     Active Substance: PIPERACILLIN SODIUM\TAZOBACTAM SODIUM
     Dates: start: 20160220
  5. CORTICOSTEROIDS NOS [Concomitant]
     Active Substance: UNSPECIFIED INGREDIENT
     Dosage: PRE-PHASE BEFORE CHEMOTHERAPY
     Dates: start: 20160209
  6. VINCRISTINE TEVA 0.1% (1 MG/1ML) [Suspect]
     Active Substance: VINCRISTINE
     Dosage: GRASPALL 2007 PROTOCOL (D1,D8)
     Route: 041
     Dates: start: 20160215
  7. TAZOCILLINE [Concomitant]
     Active Substance: PIPERACILLIN SODIUM\TAZOBACTAM SODIUM
     Dates: start: 20160206, end: 20160216
  8. CORTICOSTEROIDS NOS [Concomitant]
     Active Substance: UNSPECIFIED INGREDIENT
     Dosage: GRASPALL 2007 PROTOCOL (D2, D9)
     Route: 037
  9. ZELITREX [Concomitant]
     Active Substance: VALACYCLOVIR HYDROCHLORIDE
  10. KIDROLASE [Suspect]
     Active Substance: ASPARAGINASE
     Dosage: GRASPALL 2007 PROTOCOL (D1)
     Route: 041
     Dates: start: 20160215
  11. BACTRIM [Concomitant]
     Active Substance: SULFAMETHOXAZOLE\TRIMETHOPRIM
  12. DEXAMETHASONE MYLAN [Suspect]
     Active Substance: DEXAMETHASONE
     Dosage: GRASPALL 2007 PROTOCOL (D1, D2, D8, D9, D10)
     Route: 041
     Dates: start: 20160215
  13. LEXOMIL [Concomitant]
     Active Substance: BROMAZEPAM
  14. FORTUM [Concomitant]
     Active Substance: CEFTAZIDIME
     Dates: start: 20160205, end: 20160205
  15. AMIKACINE [Concomitant]
     Active Substance: AMIKACIN
     Dates: start: 20160205, end: 20160205
  16. ALLOPURINOL. [Concomitant]
     Active Substance: ALLOPURINOL

REACTIONS (7)
  - Catheter site infection [Unknown]
  - Hepatocellular injury [Unknown]
  - Condition aggravated [Fatal]
  - Jaundice cholestatic [Unknown]
  - Cholestasis [Unknown]
  - Status epilepticus [Recovered/Resolved]
  - Neurological decompensation [Unknown]

NARRATIVE: CASE EVENT DATE: 201602
